FAERS Safety Report 8360617-9 (Version None)
Quarter: 2012Q2

REPORT INFORMATION
  Report Type: 
  Country: None (occurrence: None)
  Receive Date: 20120511
  Receipt Date: 20120511
  Transmission Date: 20120825
  Serious: Yes (Other)
  Sender: FDA-Public Use
  Company Number: None

PATIENT
  Age: 50 Year
  Sex: Male
  Weight: 63.5036 kg

DRUGS (2)
  1. SEROQUEL [Suspect]
     Indication: CRANIOCEREBRAL INJURY
     Dosage: ONE PO QHS
     Route: 048
  2. SEROQUEL [Suspect]
     Dosage: ONE PO QD
     Route: 048

REACTIONS (3)
  - NAUSEA [None]
  - VOMITING [None]
  - DRUG EFFECT DECREASED [None]
